FAERS Safety Report 22071111 (Version 1)
Quarter: 2023Q1

REPORT INFORMATION
  Report Type: Spontaneous
  Country: US (occurrence: US)
  Receive Date: 20230307
  Receipt Date: 20230307
  Transmission Date: 20230417
  Serious: Yes (Other)
  Sender: FDA-Public Use
  Company Number: US-PFIZER INC-202300089846

PATIENT
  Age: 84 Year
  Sex: Male
  Weight: 87.54 kg

DRUGS (1)
  1. PAXLOVID [Suspect]
     Active Substance: NIRMATRELVIR\RITONAVIR
     Indication: COVID-19 treatment
     Dosage: [PF-07321332 300 MG]/[RITONAVIR 100 MG]; 2X/DAY
     Dates: start: 20230220, end: 20230225

REACTIONS (7)
  - Haematochezia [Unknown]
  - Change of bowel habit [Recovering/Resolving]
  - Faeces discoloured [Recovering/Resolving]
  - Defaecation disorder [Recovering/Resolving]
  - Urinary hesitation [Recovering/Resolving]
  - Micturition disorder [Recovering/Resolving]
  - Disease recurrence [Recovering/Resolving]

NARRATIVE: CASE EVENT DATE: 20230201
